FAERS Safety Report 13136503 (Version 1)
Quarter: 2017Q1

REPORT INFORMATION
  Report Type: Spontaneous
  Country: FR (occurrence: FR)
  Receive Date: 20170122
  Receipt Date: 20170122
  Transmission Date: 20170428
  Serious: Yes (Death)
  Sender: FDA-Public Use
  Company Number: FR-MYLANLABS-2017M1001898

PATIENT

DRUGS (20)
  1. VANCOMYCIN MYLAN [Suspect]
     Active Substance: VANCOMYCIN
     Indication: PRODUCT USED FOR UNKNOWN INDICATION
     Dosage: UNK
     Dates: start: 20161204, end: 20161207
  2. MEROPENEM. [Concomitant]
     Active Substance: MEROPENEM
     Indication: INFECTION
     Dosage: UNK
     Dates: start: 20161027, end: 20161125
  3. GENTAMICINE PANPHARMA [Concomitant]
     Active Substance: GENTAMICIN
     Indication: ENTEROBACTER INFECTION
     Dosage: UNK
     Dates: start: 20161125, end: 20161206
  4. NICARDIPINE [Concomitant]
     Active Substance: NICARDIPINE
     Indication: PRODUCT USED FOR UNKNOWN INDICATION
     Dosage: UNK
     Dates: start: 201612
  5. BACTRIM [Concomitant]
     Active Substance: SULFAMETHOXAZOLE\TRIMETHOPRIM
     Indication: INFECTION
     Dosage: UNK
     Dates: start: 20161115, end: 20161203
  6. COLIMYCINE                         /00013203/ [Concomitant]
     Active Substance: COLISTIMETHATE SODIUM
     Indication: ENTEROBACTER INFECTION
     Dosage: UNK
     Dates: start: 20161125, end: 20161205
  7. KARDEGIC [Concomitant]
     Active Substance: ASPIRIN LYSINE
     Indication: PRODUCT USED FOR UNKNOWN INDICATION
     Dosage: UNK
     Dates: start: 20161126, end: 20161203
  8. FOSFOCINE [Concomitant]
     Active Substance: FOSFOMYCIN
     Indication: INFECTION
     Dosage: UNK
     Dates: start: 20161110, end: 20161119
  9. METHYLPREDNISOLONE MYLAN [Suspect]
     Active Substance: METHYLPREDNISOLONE
     Indication: PRODUCT USED FOR UNKNOWN INDICATION
     Dosage: UNK
     Dates: start: 20161204
  10. IMIPENEM CILASTATINE MYLAN 500 MG/500 MG [Suspect]
     Active Substance: CILASTATIN SODIUM\IMIPENEM
     Indication: INFECTION
     Dosage: UNK
     Dates: start: 20161204
  11. PANTOPRAZOLE [Suspect]
     Active Substance: PANTOPRAZOLE SODIUM
     Indication: PRODUCT USED FOR UNKNOWN INDICATION
     Dosage: UNK
     Dates: end: 20161205
  12. CIPROFLOXACIN. [Suspect]
     Active Substance: CIPROFLOXACIN
     Indication: INFECTION
     Dosage: UNK
     Dates: start: 20161203, end: 20161205
  13. TRAMADOL. [Suspect]
     Active Substance: TRAMADOL
     Indication: PRODUCT USED FOR UNKNOWN INDICATION
     Dosage: UNK
     Dates: start: 20161205, end: 20161209
  14. CALCIPARINE [Concomitant]
     Active Substance: HEPARIN CALCIUM
     Indication: PRODUCT USED FOR UNKNOWN INDICATION
     Dosage: UNK
  15. CIPROFLOXACIN. [Suspect]
     Active Substance: CIPROFLOXACIN
     Dosage: UNK
     Dates: start: 20161111, end: 20161120
  16. AMLODIPINE [Concomitant]
     Active Substance: AMLODIPINE BESYLATE
     Indication: PRODUCT USED FOR UNKNOWN INDICATION
     Dosage: UNK
     Dates: start: 20161116, end: 20161203
  17. CANCIDAS [Concomitant]
     Active Substance: CASPOFUNGIN ACETATE
     Indication: INFECTION
     Dosage: UNK
     Dates: start: 20161204, end: 20161205
  18. AMIKACIN [Concomitant]
     Active Substance: AMIKACIN
     Indication: INFECTION
     Dosage: UNK
  19. VALGANCICLOVIR MYLAN [Suspect]
     Active Substance: VALGANCICLOVIR
     Indication: INFECTION
     Dosage: UNK
     Dates: start: 20161116, end: 20161203
  20. URAPIDIL [Concomitant]
     Active Substance: URAPIDIL
     Indication: PRODUCT USED FOR UNKNOWN INDICATION
     Dosage: UNK

REACTIONS (2)
  - Pancytopenia [Fatal]
  - Stevens-Johnson syndrome [Fatal]
